FAERS Safety Report 14262824 (Version 12)
Quarter: 2018Q3

REPORT INFORMATION
  Report Type: Report from Study
  Country: GB (occurrence: GB)
  Receive Date: 20171208
  Receipt Date: 20180724
  Transmission Date: 20181010
  Serious: Yes (Hospitalization, Other)
  Sender: FDA-Public Use
  Company Number: GB-ASPEN-GLO2017GB007979

PATIENT
  Age: 76 Year
  Sex: Female
  Weight: 69.9 kg

DRUGS (36)
  1. DEXAMETHASONE. [Suspect]
     Active Substance: DEXAMETHASONE
     Dosage: 20 MG, WEEKLY
     Route: 065
     Dates: start: 20171004, end: 20171011
  2. SODIUM CLODRONATE [Concomitant]
     Active Substance: CLODRONIC ACID
     Indication: PLASMA CELL MYELOMA
     Dosage: UNK
     Route: 065
  3. DEXAMETHASONE. [Suspect]
     Active Substance: DEXAMETHASONE
     Dosage: 20 MG
     Route: 065
     Dates: start: 20171115
  4. POMALIDOMIDE [Suspect]
     Active Substance: POMALIDOMIDE
     Dosage: 4 MG
     Route: 048
  5. POMALIDOMIDE [Suspect]
     Active Substance: POMALIDOMIDE
     Dosage: 4 MG
     Route: 048
  6. POMALIDOMIDE [Suspect]
     Active Substance: POMALIDOMIDE
     Dosage: 4 MG
     Route: 048
     Dates: start: 20170322, end: 20170411
  7. OMEPRAZOLE. [Concomitant]
     Active Substance: OMEPRAZOLE
     Indication: PRODUCT USED FOR UNKNOWN INDICATION
     Dosage: 1 UNK, ONCE WEEKLY
     Route: 065
     Dates: start: 20170322
  8. DEXAMETHASONE. [Suspect]
     Active Substance: DEXAMETHASONE
     Indication: PLASMA CELL MYELOMA
     Dosage: 20 MG, WEEKLY
     Route: 065
     Dates: start: 20170405
  9. DEXAMETHASONE. [Suspect]
     Active Substance: DEXAMETHASONE
     Dosage: 20 MG, WEEKLY
     Route: 065
     Dates: start: 20170809, end: 20170830
  10. DEXAMETHASONE. [Suspect]
     Active Substance: DEXAMETHASONE
     Dosage: 20 MG
     Route: 065
     Dates: start: 20171108
  11. POMALIDOMIDE [Suspect]
     Active Substance: POMALIDOMIDE
     Dosage: 4 MG
     Route: 048
  12. POMALIDOMIDE [Suspect]
     Active Substance: POMALIDOMIDE
     Dosage: 4 MG
     Route: 048
     Dates: start: 20171019
  13. DEXAMETHASONE. [Suspect]
     Active Substance: DEXAMETHASONE
     Dosage: 20 MG, WEEKLY
     Route: 065
     Dates: start: 20171019
  14. ERYTHROPOETIN [Concomitant]
     Active Substance: ERYTHROPOIETIN
     Indication: ANAEMIA
     Dosage: 1 UNK, ONCE WEEKLY
     Route: 065
     Dates: start: 20170907
  15. DEXAMETHASONE. [Suspect]
     Active Substance: DEXAMETHASONE
     Dosage: 20 MG, WEEKLY
     Route: 065
     Dates: start: 20171101, end: 20171122
  16. DEXAMETHASONE. [Suspect]
     Active Substance: DEXAMETHASONE
     Dosage: 20 MG
     Route: 065
     Dates: start: 20171122
  17. DEXAMETHASONE. [Suspect]
     Active Substance: DEXAMETHASONE
     Dosage: 20 MG
     Route: 065
  18. DEXAMETHASONE. [Suspect]
     Active Substance: DEXAMETHASONE
     Dosage: 20 MG
     Route: 065
     Dates: start: 20171101
  19. DEXAMETHASONE. [Suspect]
     Active Substance: DEXAMETHASONE
     Dosage: 20 MG
     Route: 065
     Dates: start: 20170712
  20. POMALIDOMIDE [Suspect]
     Active Substance: POMALIDOMIDE
     Indication: PLASMA CELL MYELOMA
     Dosage: 4 MG
     Route: 048
  21. ERYTHROPOETIN [Concomitant]
     Active Substance: ERYTHROPOIETIN
     Indication: FATIGUE
     Dosage: UNK
     Route: 065
  22. DEXAMETHASONE. [Suspect]
     Active Substance: DEXAMETHASONE
     Dosage: 20 MG, WEEKLY
     Route: 065
     Dates: start: 20170906, end: 20170927
  23. DEXAMETHASONE. [Suspect]
     Active Substance: DEXAMETHASONE
     Dosage: 20 MG, WEEKLY
     Route: 065
     Dates: start: 20170322, end: 20170412
  24. DEXAMETHASONE. [Suspect]
     Active Substance: DEXAMETHASONE
     Dosage: 20 MG
     Route: 065
     Dates: start: 20170809
  25. DEXAMETHASONE. [Suspect]
     Active Substance: DEXAMETHASONE
     Dosage: 20 MG
     Route: 065
     Dates: start: 20170906
  26. POMALIDOMIDE [Suspect]
     Active Substance: POMALIDOMIDE
     Dosage: 4 MG
     Route: 048
  27. DEXAMETHASONE. [Suspect]
     Active Substance: DEXAMETHASONE
     Dosage: 20 MG, WEEKLY
     Route: 065
     Dates: start: 20170614, end: 20170705
  28. DEXAMETHASONE. [Suspect]
     Active Substance: DEXAMETHASONE
     Dosage: 20 MG, WEEKLY
     Route: 065
     Dates: start: 20170906, end: 20170927
  29. DEXAMETHASONE. [Suspect]
     Active Substance: DEXAMETHASONE
     Dosage: 20 MG
     Route: 065
     Dates: start: 20170830
  30. BLOOD [Concomitant]
     Active Substance: WHOLE BLOOD
     Indication: ANAEMIA
     Dosage: UNK
     Route: 065
  31. DEXAMETHASONE. [Suspect]
     Active Substance: DEXAMETHASONE
     Dosage: 20 MG, WEEKLY
     Route: 065
     Dates: start: 20170712, end: 20170802
  32. DEXAMETHASONE. [Suspect]
     Active Substance: DEXAMETHASONE
     Dosage: 20 MG, WEEKLY
     Route: 065
     Dates: start: 20171019
  33. BLOOD [Concomitant]
     Active Substance: WHOLE BLOOD
     Indication: FATIGUE
     Dosage: UNK
     Route: 065
  34. PARACETAMOL [Concomitant]
     Active Substance: ACETAMINOPHEN
     Indication: NECK PAIN
     Dosage: UNK
     Route: 065
  35. AMLODIPINE [Concomitant]
     Active Substance: AMLODIPINE BESYLATE
     Indication: HYPERTENSION
     Dosage: UNK
     Route: 065
  36. ASPIRIN. [Concomitant]
     Active Substance: ASPIRIN
     Indication: PRODUCT USED FOR UNKNOWN INDICATION
     Dosage: UNK
     Route: 065

REACTIONS (12)
  - Neutropenia [Recovered/Resolved]
  - Fatigue [Recovered/Resolved]
  - Diarrhoea [Recovered/Resolved]
  - Anaemia [Recovered/Resolved]
  - Anaemia [Recovering/Resolving]
  - Leukopenia [Recovered/Resolved]
  - Leukopenia [Recovered/Resolved]
  - Anaemia [Recovering/Resolving]
  - Peripheral sensory neuropathy [Not Recovered/Not Resolved]
  - Lower respiratory tract infection [Recovered/Resolved]
  - Anaemia [Recovered/Resolved]
  - Fatigue [Recovered/Resolved]

NARRATIVE: CASE EVENT DATE: 20170808
